FAERS Safety Report 10047250 (Version 2)
Quarter: 2014Q1

REPORT INFORMATION
  Report Type: Spontaneous
  Country: US (occurrence: US)
  Receive Date: 20140331
  Receipt Date: 20140331
  Transmission Date: 20141002
  Serious: No
  Sender: FDA-Public Use
  Company Number: US-MYLANLABS-2013S1024684

PATIENT
  Sex: Female

DRUGS (1)
  1. FENTANYL TRANSDERMAL SYSTEM [Suspect]
     Indication: PAIN
     Dosage: 2008 INITIALLY CHANGED PATCHES Q72HR THEN ON AN UNKNOWN DATE IN 2008 FREQUENCY CHANGED TO Q48HR
     Route: 062
     Dates: start: 2008

REACTIONS (6)
  - Drug withdrawal syndrome [Recovered/Resolved]
  - Application site pruritus [Not Recovered/Not Resolved]
  - Application site discomfort [Not Recovered/Not Resolved]
  - Restless legs syndrome [Recovered/Resolved]
  - Hyperhidrosis [Recovered/Resolved]
  - Pyrexia [Recovered/Resolved]
